FAERS Safety Report 15996244 (Version 1)
Quarter: 2019Q1

REPORT INFORMATION
  Report Type: Spontaneous
  Country: GR (occurrence: GR)
  Receive Date: 20190222
  Receipt Date: 20190222
  Transmission Date: 20190418
  Serious: Yes (Death, Hospitalization, Other)
  Sender: FDA-Public Use
  Company Number: GR-ASTRAZENECA-2019SE29979

PATIENT
  Age: 68 Year
  Sex: Male

DRUGS (2)
  1. HYPERCHOLESTEROLAEMIA MEDICATION [Concomitant]
  2. BRILIQUE [Suspect]
     Active Substance: TICAGRELOR
     Indication: ACUTE CORONARY SYNDROME
     Dosage: TWO TABLETS OF 90 MG, A SINGLE LOADING DOSE
     Route: 048

REACTIONS (5)
  - Vascular stent thrombosis [Fatal]
  - Gastric haemorrhage [Fatal]
  - Acute pulmonary oedema [Fatal]
  - Haematocrit decreased [Unknown]
  - Oesophagitis chemical [Unknown]
